FAERS Safety Report 5006108-4 (Version None)
Quarter: 2006Q1

REPORT INFORMATION
  Report Type: 
  Country: None (occurrence: None)
  Receive Date: 20060328
  Receipt Date: 20051223
  Transmission Date: 20060701
  Serious: No
  Sender: FDA-Public Use
  Company Number: 05P-163-0315097-00

PATIENT
  Age: 64 Year
  Sex: Female
  Weight: 57.5 kg

DRUGS (6)
  1. HUMIRA [Suspect]
     Indication: RHEUMATOID ARTHRITIS
     Dosage: 40 MG, 1 IN 2 WK, SUBCUTANEOUS
     Route: 058
     Dates: start: 20040301, end: 20040818
  2. METHOTREXATE SODIUM [Suspect]
     Dosage: 7.5 MG, 1 IN 1 WK
     Dates: start: 19950817, end: 20050818
  3. INFLIXIMAB [Suspect]
     Dates: start: 20001101, end: 20040301
  4. RISEDRONATE SODIUM [Concomitant]
  5. NSAID [Concomitant]
  6. HYDROXYCHLOROQUINE PHOSPHATE [Concomitant]

REACTIONS (3)
  - EJECTION FRACTION DECREASED [None]
  - MUSCULOSKELETAL STIFFNESS [None]
  - NON-HODGKIN'S LYMPHOMA STAGE IV [None]
